FAERS Safety Report 8096941-7 (Version None)
Quarter: 2012Q1

REPORT INFORMATION
  Report Type: 
  Country: None (occurrence: None)
  Receive Date: 20120129
  Receipt Date: 20111204
  Transmission Date: 20120608
  Serious: No
  Sender: FDA-Public Use
  Company Number: US-ABBOTT-11P-163-0880737-00

PATIENT
  Age: 24 Year
  Sex: Female

DRUGS (2)
  1. HUMIRA [Suspect]
     Indication: PSORIASIS
     Dates: start: 20110301
  2. MIRENA [Concomitant]
     Indication: CONTRACEPTION
     Dates: start: 20111202

REACTIONS (9)
  - OROPHARYNGEAL PAIN [None]
  - PRODUCTIVE COUGH [None]
  - HAEMOPTYSIS [None]
  - LOWER URINARY TRACT SYMPTOMS [None]
  - SPUTUM DISCOLOURED [None]
  - FUNGAL INFECTION [None]
  - TOOTHACHE [None]
  - HEADACHE [None]
  - SINUS HEADACHE [None]
